FAERS Safety Report 13906198 (Version 2)
Quarter: 2017Q3

REPORT INFORMATION
  Report Type: Spontaneous
  Country: TW (occurrence: TW)
  Receive Date: 20170825
  Receipt Date: 20170831
  Transmission Date: 20171127
  Serious: Yes (Other)
  Sender: FDA-Public Use
  Company Number: TW-PFIZER INC-2017363098

PATIENT
  Age: 80 Year
  Sex: Female

DRUGS (8)
  1. MADOPAR [Concomitant]
     Active Substance: BENSERAZIDE HYDROCHLORIDE\LEVODOPA
     Dosage: UNK
     Route: 048
  2. BOKEY [Concomitant]
     Dosage: UNK
     Route: 048
  3. LYRICA [Suspect]
     Active Substance: PREGABALIN
     Dosage: 75 MG, AS NEEDED
     Route: 048
  4. RAKINSON [Concomitant]
     Dosage: UNK
     Route: 048
  5. SIGMART [Concomitant]
     Active Substance: NICORANDIL
     Dosage: UNK
     Route: 048
  6. NORVASC [Concomitant]
     Active Substance: AMLODIPINE BESYLATE
     Dosage: UNK
     Route: 048
  7. LYRICA [Suspect]
     Active Substance: PREGABALIN
     Indication: POST HERPETIC NEURALGIA
     Dosage: 75 MG, TID
     Route: 048
  8. LYRICA [Suspect]
     Active Substance: PREGABALIN
     Dosage: 75 MG, QD
     Route: 048

REACTIONS (7)
  - Condition aggravated [Unknown]
  - Osteoporosis [Unknown]
  - Off label use [Unknown]
  - Nephrolithiasis [Unknown]
  - Alopecia [Unknown]
  - Oedema [Unknown]
  - Abdominal pain [Unknown]
